FAERS Safety Report 6896520-0 (Version None)
Quarter: 2010Q3

REPORT INFORMATION
  Report Type: 
  Country: None (occurrence: None)
  Receive Date: 20100802
  Receipt Date: 20090308
  Transmission Date: 20110219
  Serious: No
  Sender: FDA-Public Use
  Company Number: US-PFIZER INC-2009160361

PATIENT
  Sex: Female
  Weight: 72.121 kg

DRUGS (3)
  1. AMLODIPINE BESYLATE [Suspect]
     Indication: HYPERTENSION
     Dosage: 10 MG, 1X/DAY
  2. LEVOTHYROXINE SODIUM [Concomitant]
     Dosage: UNK
  3. VALSARTAN [Concomitant]

REACTIONS (1)
  - DYSPHAGIA [None]
